FAERS Safety Report 4880676-5 (Version None)
Quarter: 2006Q1

REPORT INFORMATION
  Report Type: 
  Country: None (occurrence: None)
  Receive Date: 20060113
  Receipt Date: 20050125
  Transmission Date: 20060701
  Serious: Yes (Hospitalization, Disabling, Other)
  Sender: FDA-Public Use
  Company Number: US-MERCK-0501USA04127

PATIENT
  Age: 36 Year
  Sex: Male
  Weight: 118 kg

DRUGS (7)
  1. VIOXX [Suspect]
     Indication: NECK PAIN
     Route: 048
     Dates: start: 19990101, end: 20010101
  2. VIOXX [Suspect]
     Indication: BACK PAIN
     Route: 048
     Dates: start: 19990101, end: 20010101
  3. VICODIN [Concomitant]
     Route: 065
  4. AMBIEN [Concomitant]
     Route: 065
  5. ULTRAM [Concomitant]
     Route: 065
  6. TENORMIN [Concomitant]
     Route: 065
  7. MAXZIDE [Concomitant]
     Route: 065

REACTIONS (6)
  - DEEP VEIN THROMBOSIS [None]
  - HYPOTHYROIDISM [None]
  - INFERTILITY MALE [None]
  - JOINT INJURY [None]
  - MYOCARDIAL INFARCTION [None]
  - PULMONARY EMBOLISM [None]
